FAERS Safety Report 24424854 (Version 3)
Quarter: 2024Q4

REPORT INFORMATION
  Report Type: Spontaneous
  Country: PT (occurrence: PT)
  Receive Date: 20241010
  Receipt Date: 20241225
  Transmission Date: 20250114
  Serious: Yes (Hospitalization)
  Sender: ABBVIE
  Company Number: PT-ABBVIE-5958542

PATIENT
  Sex: Female

DRUGS (2)
  1. RINVOQ [Suspect]
     Active Substance: UPADACITINIB
     Indication: Colitis ulcerative
     Route: 048
  2. RINVOQ [Suspect]
     Active Substance: UPADACITINIB
     Indication: Colitis ulcerative
     Route: 048

REACTIONS (6)
  - Cytomegalovirus infection reactivation [Recovered/Resolved]
  - Colitis ulcerative [Unknown]
  - Drug ineffective [Unknown]
  - Rectal tenesmus [Not Recovered/Not Resolved]
  - Colitis [Unknown]
  - Ulcer [Unknown]
